FAERS Safety Report 20418225 (Version 1)
Quarter: 2022Q1

REPORT INFORMATION
  Report Type: Spontaneous
  Country: US (occurrence: None)
  Receive Date: 20220202
  Receipt Date: 20220202
  Transmission Date: 20220423
  Serious: Yes (Life-Threatening, Hospitalization, Other)
  Sender: FDA-Public Use
  Company Number: None

PATIENT
  Sex: Female

DRUGS (4)
  1. KETAMINE [Suspect]
     Active Substance: KETAMINE
     Indication: Drug screen positive
     Dosage: FREQUENCY : UNKNOWN;?OTHER ROUTE : INJECTED;?
     Route: 050
     Dates: start: 20190115
  2. KETAMINE [Suspect]
     Active Substance: KETAMINE
     Indication: Legal problem
  3. FENTANYL [Suspect]
     Active Substance: FENTANYL
     Indication: Drug screen positive
     Dosage: OTHER FREQUENCY : IDK;?OTHER ROUTE : INJECTED;?
     Route: 050
     Dates: start: 20190115
  4. FENTANYL [Suspect]
     Active Substance: FENTANYL
     Indication: Legal problem

REACTIONS (5)
  - Product use issue [None]
  - Toxicity to various agents [None]
  - Intentional product misuse [None]
  - Victim of crime [None]
  - Loss of consciousness [None]

NARRATIVE: CASE EVENT DATE: 20190115
